FAERS Safety Report 17232559 (Version 9)
Quarter: 2020Q1

REPORT INFORMATION
  Report Type: Report from Study
  Country: MY (occurrence: MY)
  Receive Date: 20200103
  Receipt Date: 20200320
  Transmission Date: 20200409
  Serious: Yes (Hospitalization)
  Sender: FDA-Public Use
  Company Number: MY-EISAI MEDICAL RESEARCH-EC-2020-068060

PATIENT
  Age: 63 Year
  Sex: Male
  Weight: 60 kg

DRUGS (20)
  1. PEMBROLIZUMAB. [Suspect]
     Active Substance: PEMBROLIZUMAB
     Route: 041
     Dates: start: 20191204, end: 20191204
  2. MEGACE [Concomitant]
     Active Substance: MEGESTROL ACETATE
     Dates: start: 20191113, end: 20191219
  3. JANUVIA [Concomitant]
     Active Substance: SITAGLIPTIN PHOSPHATE
     Dates: start: 20191217
  4. NOVORAPID [Concomitant]
     Active Substance: INSULIN ASPART
     Dates: start: 20191217, end: 20191219
  5. FUCICORT [Concomitant]
     Active Substance: BETAMETHASONE VALERATE\FUSIDIC ACID
     Dates: start: 20191217, end: 20191231
  6. LENVATINIB [Suspect]
     Active Substance: LENVATINIB
     Indication: NON-SMALL CELL LUNG CANCER METASTATIC
     Route: 048
     Dates: start: 20190911
  7. LEVOTHYROXINE SODIUM. [Concomitant]
     Active Substance: LEVOTHYROXINE SODIUM
     Dates: start: 20191021, end: 20191225
  8. PREDNISOLONE. [Concomitant]
     Active Substance: PREDNISOLONE
     Dates: start: 20191216, end: 20191226
  9. AUGMENTIN [Concomitant]
     Active Substance: AMOXICILLIN\CLAVULANATE POTASSIUM
     Dates: start: 20191219, end: 20191225
  10. NORVASC [Concomitant]
     Active Substance: AMLODIPINE BESYLATE
     Dates: start: 20191010
  11. CYANOCOBALAMIN (+) LYSINE HYDROCHLORIDE (CYANOCOBALAMIN, LYSINE HYDROC [Concomitant]
     Dates: start: 20191030, end: 20200113
  12. CELEBREX [Concomitant]
     Active Substance: CELECOXIB
     Dates: start: 20191216, end: 20191225
  13. PEMBROLIZUMAB. [Suspect]
     Active Substance: PEMBROLIZUMAB
     Indication: NON-SMALL CELL LUNG CANCER METASTATIC
     Route: 041
     Dates: start: 20190911, end: 20191113
  14. DUOLIN [Concomitant]
     Dates: start: 20191021, end: 20191231
  15. DEXTROMETHORPHAN [Concomitant]
     Active Substance: DEXTROMETHORPHAN
     Dates: start: 20191218, end: 20191219
  16. PEMBROLIZUMAB. [Suspect]
     Active Substance: PEMBROLIZUMAB
     Route: 041
     Dates: start: 20191230
  17. NEXIUM [Concomitant]
     Active Substance: ESOMEPRAZOLE MAGNESIUM
     Dates: start: 20191216, end: 20191219
  18. DORMICUM [Concomitant]
     Dates: start: 20191113
  19. QV CREAM [Concomitant]
     Dates: start: 20191114, end: 20191231
  20. ZINFORO [Concomitant]
     Active Substance: CEFTAROLINE FOSAMIL
     Dates: start: 20191216, end: 20191219

REACTIONS (1)
  - Atrial fibrillation [Recovering/Resolving]

NARRATIVE: CASE EVENT DATE: 20191226
